FAERS Safety Report 15187600 (Version 1)
Quarter: 2018Q3

REPORT INFORMATION
  Report Type: Spontaneous
  Country: AR (occurrence: AR)
  Receive Date: 20180723
  Receipt Date: 20180723
  Transmission Date: 20181010
  Serious: Yes (Other)
  Sender: FDA-Public Use
  Company Number: AR-AMGEN-ARGSP2018069718

PATIENT
  Age: 65 Year
  Sex: Female

DRUGS (1)
  1. ENBREL [Suspect]
     Active Substance: ETANERCEPT
     Indication: RHEUMATOID ARTHRITIS
     Dosage: 50 MG, WEEKLY
     Route: 065
     Dates: start: 20160706

REACTIONS (7)
  - Lower limb fracture [Recovering/Resolving]
  - Arthropathy [Recovering/Resolving]
  - Condition aggravated [Unknown]
  - Gait disturbance [Unknown]
  - Malaise [Recovering/Resolving]
  - Sleep disorder due to a general medical condition [Recovering/Resolving]
  - Fall [Recovering/Resolving]

NARRATIVE: CASE EVENT DATE: 20180503
